FAERS Safety Report 5313033-8 (Version None)
Quarter: 2007Q1

REPORT INFORMATION
  Report Type: 
  Country: None (occurrence: None)
  Receive Date: 20070201
  Receipt Date: 20061002
  Transmission Date: 20070707
  Serious: No
  Sender: FDA-Public Use
  Company Number: VNL_0226_2006

PATIENT
  Age: 74 Year
  Sex: Male
  Weight: 81.6475 kg

DRUGS (11)
  1. APOKYN [Suspect]
     Indication: PARKINSON'S DISEASE
     Dosage: 0.2 ML PRN SC
     Route: 058
     Dates: start: 20060928, end: 20061001
  2. APOKYN [Suspect]
     Indication: PARKINSON'S DISEASE
     Dosage: 0.3 ML ONCE SC
     Route: 058
     Dates: start: 20061001, end: 20061001
  3. APOKYN [Suspect]
     Indication: PARKINSON'S DISEASE
     Dosage: 0.2 ML SC
     Route: 058
     Dates: start: 20061001, end: 20061001
  4. APOKYN [Suspect]
     Indication: PARKINSON'S DISEASE
     Dosage: 0.3 ML SC
     Route: 058
     Dates: start: 20061001
  5. PLAVIX [Concomitant]
  6. ENABLEX [Concomitant]
  7. REQUIP [Concomitant]
  8. STALEVO 100 [Concomitant]
  9. TRAMADOL HCL [Concomitant]
  10. METHOCARBAMOL [Concomitant]
  11. TIGAN [Concomitant]

REACTIONS (3)
  - DIZZINESS [None]
  - NAUSEA [None]
  - OEDEMA PERIPHERAL [None]
